FAERS Safety Report 10346051 (Version 2)
Quarter: 2014Q3

REPORT INFORMATION
  Report Type: Spontaneous
  Country: US (occurrence: US)
  Receive Date: 20140728
  Receipt Date: 20140806
  Transmission Date: 20150326
  Serious: Yes (Hospitalization, Other)
  Sender: FDA-Public Use
  Company Number: US-JNJFOC-20140716502

PATIENT
  Age: 64 Year
  Sex: Male
  Weight: 68.9 kg

DRUGS (6)
  1. GABAPENTIN. [Concomitant]
     Active Substance: GABAPENTIN
     Indication: RESTLESS LEGS SYNDROME
     Route: 048
  2. IMBRUVICA [Suspect]
     Active Substance: IBRUTINIB
     Indication: MANTLE CELL LYMPHOMA
     Route: 048
     Dates: start: 201407, end: 201407
  3. CLARITIN [Concomitant]
     Active Substance: LORATADINE
     Indication: SEASONAL ALLERGY
     Route: 048
  4. WELLBUTRIN [Concomitant]
     Active Substance: BUPROPION HYDROCHLORIDE
     Route: 048
  5. PRILOSEC [Concomitant]
     Active Substance: OMEPRAZOLE MAGNESIUM
     Route: 048
  6. IMBRUVICA [Suspect]
     Active Substance: IBRUTINIB
     Indication: MANTLE CELL LYMPHOMA
     Route: 048
     Dates: start: 20140627, end: 20140710

REACTIONS (7)
  - Thrombocytopenia [Recovering/Resolving]
  - Petechiae [Recovering/Resolving]
  - Rash pruritic [Recovering/Resolving]
  - Rash erythematous [Recovering/Resolving]
  - Mucosal inflammation [Unknown]
  - Purpura [Not Recovered/Not Resolved]
  - Lymphocyte count increased [Recovering/Resolving]

NARRATIVE: CASE EVENT DATE: 2014
